FAERS Safety Report 10302838 (Version 1)
Quarter: 2014Q3

REPORT INFORMATION
  Report Type: Report from Study
  Country: US (occurrence: US)
  Receive Date: 20140714
  Receipt Date: 20140714
  Transmission Date: 20150326
  Serious: Yes (Hospitalization)
  Sender: FDA-Public Use
  Company Number: US-MERCK-1407USA004051

PATIENT
  Age: 39 Year
  Sex: Female
  Weight: 65 kg

DRUGS (6)
  1. IDARUBICIN [Suspect]
     Active Substance: IDARUBICIN
     Indication: ACUTE MYELOID LEUKAEMIA
     Dosage: COURSE 3
     Route: 042
     Dates: start: 20140606, end: 20140607
  2. VORINOSTAT [Suspect]
     Active Substance: VORINOSTAT
     Dosage: FIRST COURSE
     Route: 048
     Dates: start: 20140122, end: 20140124
  3. CYTARABINE. [Suspect]
     Active Substance: CYTARABINE
     Indication: ACUTE MYELOID LEUKAEMIA
     Dosage: COURSE 3
     Route: 042
     Dates: start: 20140606, end: 20140609
  4. IDARUBICIN [Suspect]
     Active Substance: IDARUBICIN
     Dosage: FIRST COURSE
     Route: 042
     Dates: start: 20140125, end: 20140127
  5. VORINOSTAT [Suspect]
     Active Substance: VORINOSTAT
     Indication: ACUTE MYELOID LEUKAEMIA
     Dosage: 500 MG, TID (DAYS 1-3)
     Route: 048
     Dates: start: 20140603, end: 20140606
  6. CYTARABINE. [Suspect]
     Active Substance: CYTARABINE
     Dosage: FIRST COURSE
     Route: 042
     Dates: start: 20140125, end: 20140128

REACTIONS (3)
  - Colitis [Recovering/Resolving]
  - Device related infection [Recovering/Resolving]
  - Febrile neutropenia [Recovering/Resolving]

NARRATIVE: CASE EVENT DATE: 20140618
